FAERS Safety Report 25396120 (Version 1)
Quarter: 2025Q2

REPORT INFORMATION
  Report Type: Spontaneous
  Country: CA (occurrence: None)
  Receive Date: 20250603
  Receipt Date: 20250603
  Transmission Date: 20250716
  Serious: Yes (Life-Threatening, Disabling, Other)
  Sender: FDA-CTU
  Company Number: None

PATIENT
  Age: 50 Year
  Sex: Female

DRUGS (3)
  1. ESCITALOPRAM [Suspect]
     Active Substance: ESCITALOPRAM OXALATE
     Indication: Depression
  2. CLONAZEPAM [Suspect]
     Active Substance: CLONAZEPAM
  3. PROPRANOLOL [Suspect]
     Active Substance: PROPRANOLOL HYDROCHLORIDE

REACTIONS (28)
  - Withdrawal syndrome [None]
  - Vomiting [None]
  - Dizziness [None]
  - Delusion [None]
  - Wrong technique in product usage process [None]
  - Agitation [None]
  - Brain fog [None]
  - Loss of personal independence in daily activities [None]
  - Rash [None]
  - Rash [None]
  - Mania [None]
  - Anxiety [None]
  - Depression [None]
  - Insomnia [None]
  - Visual snow syndrome [None]
  - Photophobia [None]
  - Paraesthesia [None]
  - Derealisation [None]
  - Confusional state [None]
  - Muscular weakness [None]
  - Pain [None]
  - Akathisia [None]
  - Fear [None]
  - Abdominal discomfort [None]
  - Dystonia [None]
  - Suicidal ideation [None]
  - Body temperature abnormal [None]
  - Impaired work ability [None]

NARRATIVE: CASE EVENT DATE: 20230210
